FAERS Safety Report 17175153 (Version 1)
Quarter: 2019Q4

REPORT INFORMATION
  Report Type: Spontaneous
  Country: US (occurrence: US)
  Receive Date: 20191219
  Receipt Date: 20191219
  Transmission Date: 20200122
  Serious: Yes (Death, Other)
  Sender: FDA-Public Use
  Company Number: US-TAKEDA-2019TUS071872

PATIENT
  Age: 20 Year
  Sex: Male

DRUGS (3)
  1. METHYLPREDNISOLONE. [Suspect]
     Active Substance: METHYLPREDNISOLONE
     Indication: HEART TRANSPLANT REJECTION
     Dosage: UNK
     Route: 065
  2. BORTEZOMIB. [Suspect]
     Active Substance: BORTEZOMIB
     Indication: HEART TRANSPLANT REJECTION
     Dosage: 1.3 MILLIGRAM/SQ. METER
     Route: 065
  3. RITUXIMAB. [Suspect]
     Active Substance: RITUXIMAB
     Indication: HEART TRANSPLANT REJECTION
     Dosage: 375 MILLIGRAM/SQ. METER
     Route: 042

REACTIONS (8)
  - Off label use [Unknown]
  - Pulmonary hypertension [Unknown]
  - Pulmonary toxicity [Fatal]
  - Renal impairment [Unknown]
  - Cardiac arrest [Unknown]
  - Thrombocytopenia [Recovering/Resolving]
  - Neuropathy peripheral [Unknown]
  - Blood creatinine increased [Unknown]
